FAERS Safety Report 21268810 (Version 1)
Quarter: 2022Q3

REPORT INFORMATION
  Report Type: Spontaneous
  Country: US (occurrence: US)
  Receive Date: 20220830
  Receipt Date: 20220830
  Transmission Date: 20221026
  Serious: No
  Sender: FDA-Public Use
  Company Number: US-TARO PHARMACEUTICALS USA INC.-2022TAR00142

PATIENT

DRUGS (1)
  1. CLOBETASOL PROPIONATE [Suspect]
     Active Substance: CLOBETASOL PROPIONATE
     Indication: Pruritus
     Dosage: DOSE/AMOUNT:SOME
     Route: 061
     Dates: end: 20220121

REACTIONS (2)
  - Application site wound [Not Recovered/Not Resolved]
  - Pruritus [Not Recovered/Not Resolved]
